FAERS Safety Report 6113768-3 (Version None)
Quarter: 2009Q1

REPORT INFORMATION
  Report Type: 
  Country: None (occurrence: None)
  Receive Date: 20090312
  Receipt Date: 20090227
  Transmission Date: 20090719
  Serious: Yes (Other)
  Sender: FDA-Public Use
  Company Number: FR-B.I. PHARMACEUTICALS,INC./RIDGEFIELD-2009-BP-03004YA

PATIENT
  Age: 62 Year
  Sex: Male

DRUGS (2)
  1. TAMSULOSIN HCL [Suspect]
     Indication: DYSURIA
     Route: 048
  2. OFLOCET [Suspect]
     Indication: URINARY TRACT INFECTION
     Route: 065

REACTIONS (4)
  - FALL [None]
  - ORTHOSTATIC HYPOTENSION [None]
  - POTENTIATING DRUG INTERACTION [None]
  - URINARY TRACT INFECTION [None]
